FAERS Safety Report 21110554 (Version 1)
Quarter: 2022Q3

REPORT INFORMATION
  Report Type: Spontaneous
  Country: GB (occurrence: GB)
  Receive Date: 20220721
  Receipt Date: 20220721
  Transmission Date: 20221027
  Serious: Yes (Other)
  Sender: FDA-Public Use
  Company Number: GB-MHRA-ADR 27085307

PATIENT
  Sex: Male

DRUGS (1)
  1. BICALUTAMIDE [Suspect]
     Active Substance: BICALUTAMIDE
     Indication: Abnormal behaviour
     Route: 065

REACTIONS (2)
  - Abnormal behaviour [Unknown]
  - Product quality issue [Unknown]
